FAERS Safety Report 6664683-8 (Version None)
Quarter: 2010Q2

REPORT INFORMATION
  Report Type: 
  Country: None (occurrence: None)
  Receive Date: 20100401
  Receipt Date: 20100331
  Transmission Date: 20101027
  Serious: Yes (Life-Threatening)
  Sender: FDA-Public Use
  Company Number: ES-MERCK-1003ESP00067

PATIENT
  Age: 78 Year
  Sex: Male

DRUGS (13)
  1. COZAAR [Suspect]
     Indication: ACUTE MYOCARDIAL INFARCTION
     Route: 048
     Dates: start: 20091204, end: 20091205
  2. COZAAR [Suspect]
     Route: 048
     Dates: start: 20091210, end: 20100112
  3. CAPTOPRIL [Suspect]
     Indication: ACUTE MYOCARDIAL INFARCTION
     Route: 048
     Dates: start: 20091127, end: 20091204
  4. METFORMIN HYDROCHLORIDE [Suspect]
     Indication: DIABETES MELLITUS
     Route: 048
     Dates: start: 20090101, end: 20100113
  5. RANITIDINE [Suspect]
     Indication: PROPHYLAXIS AGAINST GASTROINTESTINAL ULCER
     Route: 048
     Dates: start: 20091127, end: 20100112
  6. CETIRIZINE HYDROCHLORIDE [Suspect]
     Indication: URTICARIA
     Route: 048
     Dates: start: 20091204, end: 20091207
  7. ASPIRIN [Suspect]
     Indication: ACUTE MYOCARDIAL INFARCTION
     Route: 048
     Dates: start: 20091126
  8. BISOPROLOL FUMARATE [Suspect]
     Indication: ACUTE MYOCARDIAL INFARCTION
     Route: 048
     Dates: start: 20091210, end: 20100112
  9. ZETIA [Suspect]
     Indication: ACUTE MYOCARDIAL INFARCTION
     Route: 048
     Dates: start: 20091216, end: 20100112
  10. GLIMEPIRIDE [Suspect]
     Indication: DIABETES MELLITUS
     Route: 048
     Dates: start: 20091110, end: 20100112
  11. CLOPIDOGREL BISULFATE [Suspect]
     Indication: ACUTE MYOCARDIAL INFARCTION
     Route: 048
     Dates: start: 20091126, end: 20100112
  12. GLIMEPIRIDE [Suspect]
     Indication: ACUTE MYOCARDIAL INFARCTION
     Route: 048
     Dates: start: 20090101, end: 20091204
  13. ATORVASTATIN CALCIUM [Suspect]
     Indication: ACUTE MYOCARDIAL INFARCTION
     Route: 048
     Dates: start: 20091127, end: 20091204

REACTIONS (3)
  - DRUG INTERACTION [None]
  - NEUTROPENIA [None]
  - OVERDOSE [None]
